FAERS Safety Report 9087556 (Version 3)
Quarter: 2013Q2

REPORT INFORMATION
  Report Type: Spontaneous
  Country: JP (occurrence: JP)
  Receive Date: 20130201
  Receipt Date: 20130502
  Transmission Date: 20140414
  Serious: Yes (Hospitalization, Other)
  Sender: FDA-Public Use
  Company Number: JP-TEVA-2011004885

PATIENT
  Age: 69 Year
  Sex: Female
  Weight: 53.8 kg

DRUGS (24)
  1. BENDAMUSTINE [Suspect]
     Indication: SPLENIC MARGINAL ZONE LYMPHOMA
     Dosage: 90 MG/M2 DAILY;
     Route: 042
     Dates: start: 20110224, end: 20110225
  2. BENDAMUSTINE [Suspect]
     Dosage: 90 MG/M2 DAILY;
     Route: 042
     Dates: start: 20110330, end: 20110331
  3. BENDAMUSTINE [Suspect]
     Dosage: 90 MG/M2 DAILY;
     Route: 042
     Dates: start: 20110525, end: 20110526
  4. BENDAMUSTINE [Suspect]
     Dosage: 90 MG/M2 DAILY;
     Route: 042
     Dates: start: 20110622, end: 20110623
  5. BENDAMUSTINE [Suspect]
     Dosage: 90 MG/M2 DAILY;
     Route: 042
     Dates: start: 20110720, end: 20110721
  6. BENDAMUSTINE [Suspect]
     Dosage: 90 MG/M2 DAILY;
     Route: 042
     Dates: start: 20110427, end: 20110428
  7. RITUXIMAB [Suspect]
     Indication: SPLENIC MARGINAL ZONE LYMPHOMA
     Dosage: 560 MILLIGRAM DAILY;
     Route: 042
     Dates: start: 20110223, end: 20110223
  8. RITUXIMAB [Suspect]
     Dosage: 560 MILLIGRAM DAILY;
     Route: 042
     Dates: start: 20110329, end: 20110329
  9. RITUXIMAB [Suspect]
     Dosage: 560 MILLIGRAM DAILY;
     Route: 042
     Dates: start: 20110426, end: 20110426
  10. RITUXIMAB [Suspect]
     Dosage: 560 MILLIGRAM DAILY;
     Route: 042
     Dates: start: 20110524
  11. RITUXIMAB [Suspect]
     Dosage: 560 MILLIGRAM DAILY;
     Route: 042
     Dates: start: 20110621, end: 20110621
  12. RITUXIMAB [Suspect]
     Dosage: 560 MILLIGRAM DAILY;
     Route: 042
     Dates: start: 20110719, end: 20110719
  13. ASPIRIN [Concomitant]
  14. DILTIAZEM HYDROCHLORIDE [Concomitant]
     Dates: end: 20110523
  15. AMOXICILLIN [Concomitant]
     Dates: start: 20110225, end: 20110303
  16. SULFAMETHOXAZOLE AND TRIMETHOPRIM [Concomitant]
     Dates: start: 20110223
  17. ACICLOVIR [Concomitant]
     Dates: start: 20110223
  18. ROSUVASTATIN CALCIUM [Concomitant]
  19. AMLODIPINE BESILATE [Concomitant]
  20. RABEPRAZOLE SODIUM [Concomitant]
     Dates: start: 20110304
  21. LANSOPRAZOLE [Concomitant]
     Dates: start: 20110225, end: 20110303
  22. CLARITHROMYCIN [Concomitant]
     Dates: start: 20110225, end: 20110303
  23. PALONOSETRON HYDROCHLORIDE [Concomitant]
     Dates: start: 20110224, end: 20110720
  24. HYDROCORTISONE SODIUM SUCCINATE [Concomitant]
     Dates: start: 20110330, end: 20110721

REACTIONS (7)
  - White blood cell count decreased [Recovered/Resolved]
  - Lymphocyte count decreased [Recovered/Resolved]
  - Basal cell carcinoma [Recovered/Resolved]
  - Vasculitis [Recovering/Resolving]
  - Neutrophil count decreased [Recovered/Resolved]
  - Erythema [Recovering/Resolving]
  - Nasopharyngitis [Unknown]
